FAERS Safety Report 12274508 (Version 1)
Quarter: 2016Q2

REPORT INFORMATION
  Report Type: Spontaneous
  Country: US (occurrence: US)
  Receive Date: 20160415
  Receipt Date: 20160415
  Transmission Date: 20160815
  Serious: No
  Sender: FDA-Public Use
  Company Number: US-009507513-1604USA005915

PATIENT
  Age: 19 Year
  Sex: Female
  Weight: 54.42 kg

DRUGS (1)
  1. NEXPLANON [Suspect]
     Active Substance: ETONOGESTREL
     Indication: CONTRACEPTION
     Dosage: 3 YEAR IMPLANT
     Route: 059
     Dates: start: 20140102

REACTIONS (5)
  - Menstruation delayed [Unknown]
  - Menstruation irregular [Not Recovered/Not Resolved]
  - Metrorrhagia [Unknown]
  - Weight decreased [Not Recovered/Not Resolved]
  - Menorrhagia [Unknown]

NARRATIVE: CASE EVENT DATE: 20140102
